FAERS Safety Report 11803977 (Version 1)
Quarter: 2015Q4

REPORT INFORMATION
  Report Type: Spontaneous
  Country: US (occurrence: US)
  Receive Date: 20151204
  Receipt Date: 20151204
  Transmission Date: 20160305
  Serious: Yes (Death)
  Sender: FDA-Public Use
  Company Number: US-ASTRAZENECA-2015SF19603

PATIENT
  Age: 119 Day
  Sex: Male

DRUGS (2)
  1. SYNAGIS [Suspect]
     Active Substance: PALIVIZUMAB
     Indication: PREMATURE BABY
     Dosage: 100 MG/ML, 15 MG/KG MONTHLY
     Route: 030
     Dates: start: 20151103, end: 20151118
  2. SYNAGIS [Suspect]
     Active Substance: PALIVIZUMAB
     Indication: ANTIVIRAL PROPHYLAXIS
     Dosage: 100 MG/ML, 15 MG/KG MONTHLY
     Route: 030
     Dates: start: 20151103, end: 20151118

REACTIONS (1)
  - Bronchial secretion retention [Fatal]

NARRATIVE: CASE EVENT DATE: 20151118
